FAERS Safety Report 7681098-4 (Version None)
Quarter: 2011Q3

REPORT INFORMATION
  Report Type: 
  Country: None (occurrence: None)
  Receive Date: 20110812
  Receipt Date: 20110808
  Transmission Date: 20111222
  Serious: No
  Sender: FDA-Public Use
  Company Number: US-PFIZER INC-2011182761

PATIENT
  Sex: Female
  Weight: 63.492 kg

DRUGS (7)
  1. QUINAPRIL [Concomitant]
     Indication: HYPERTENSION
     Dosage: 15 MG, 2X/DAY
  2. DILTIAZEM HCL [Suspect]
     Dosage: 120 MG, DAILY
     Dates: start: 20110627
  3. CRESTOR [Concomitant]
     Indication: BLOOD CHOLESTEROL INCREASED
     Dosage: 20 MG, DAILY
  4. PRADAXA [Concomitant]
     Dosage: 150 MG, 2X/DAY
  5. TIKOSYN [Suspect]
     Indication: HEART DISEASE CONGENITAL
     Dosage: 250 MG, 2X/DAY
     Dates: start: 20110627
  6. TIKOSYN [Suspect]
     Indication: ARRHYTHMIA
  7. LASIX [Concomitant]
     Dosage: 20 MG, DAILY

REACTIONS (1)
  - NASOPHARYNGITIS [None]
